FAERS Safety Report 6740830-4 (Version None)
Quarter: 2010Q2

REPORT INFORMATION
  Report Type: 
  Country: None (occurrence: None)
  Receive Date: 20100526
  Receipt Date: 20100518
  Transmission Date: 20101027
  Serious: Yes (Other)
  Sender: FDA-Public Use
  Company Number: US-RB-008797-10

PATIENT
  Age: 34 Year
  Sex: Female

DRUGS (1)
  1. MUCINEX DM [Suspect]
     Dosage: TOOK TWO TABLETS IN ONE DOSE INSTEAD OF ONE.
     Route: 048
     Dates: start: 20100429

REACTIONS (5)
  - ABNORMAL DREAMS [None]
  - ACCIDENTAL OVERDOSE [None]
  - DIZZINESS [None]
  - FATIGUE [None]
  - HALLUCINATION, VISUAL [None]
